FAERS Safety Report 16721768 (Version 1)
Quarter: 2019Q3

REPORT INFORMATION
  Report Type: Spontaneous
  Country: DE (occurrence: DE)
  Receive Date: 20190820
  Receipt Date: 20190820
  Transmission Date: 20191005
  Serious: Yes (Other)
  Sender: FDA-Public Use
  Company Number: DE-MYLANLABS-2019M1077484

PATIENT
  Age: 63 Year
  Sex: Female

DRUGS (4)
  1. GOSERELIN ACETATE [Concomitant]
     Active Substance: GOSERELIN ACETATE
     Indication: OVARIAN CANCER STAGE III
     Dosage: UNK
     Route: 065
     Dates: start: 2001, end: 2016
  2. EXEMESTANE. [Concomitant]
     Active Substance: EXEMESTANE
     Indication: OVARIAN CANCER STAGE III
     Dosage: UNK
     Route: 065
     Dates: start: 2001, end: 2016
  3. FULVESTRANT. [Suspect]
     Active Substance: FULVESTRANT
     Indication: OVARIAN CANCER STAGE III
     Dosage: UNK
     Route: 065
     Dates: end: 201606
  4. TAMOXIFEN [Concomitant]
     Active Substance: TAMOXIFEN
     Indication: OVARIAN CANCER STAGE III
     Dosage: UNK
     Route: 005
     Dates: start: 2001, end: 2016

REACTIONS (3)
  - Ovarian cancer stage III [Unknown]
  - Malignant neoplasm progression [Unknown]
  - Product use in unapproved indication [Unknown]
